FAERS Safety Report 21937360 (Version 2)
Quarter: 2023Q1

REPORT INFORMATION
  Report Type: Spontaneous
  Country: US (occurrence: US)
  Receive Date: 20230201
  Receipt Date: 20230223
  Transmission Date: 20230418
  Serious: No
  Sender: FDA-Public Use
  Company Number: US-BAYER-2023P007760

PATIENT
  Age: 54 Year
  Sex: Female

DRUGS (3)
  1. JIVI [Suspect]
     Active Substance: DAMOCTOCOG ALFA PEGOL
     Indication: Factor VIII deficiency
     Dosage: 931 10E6 IU
     Route: 042
     Dates: start: 202212
  2. JIVI [Suspect]
     Active Substance: DAMOCTOCOG ALFA PEGOL
     Indication: Factor VIII deficiency
     Dosage: 2069 UNITS
     Route: 042
     Dates: start: 202212
  3. JIVI [Suspect]
     Active Substance: DAMOCTOCOG ALFA PEGOL
     Indication: Factor VIII deficiency
     Dosage: SLOW IV PUSH ON FIRST DAY OF MENSTRUALPERIODS AND AS NEEDED FOR EXCESSIVE BLEEDING
     Route: 042

REACTIONS (1)
  - Joint swelling [None]
